FAERS Safety Report 18654549 (Version 1)
Quarter: 2020Q4

REPORT INFORMATION
  Report Type: Other
  Country: AU (occurrence: AU)
  Receive Date: 20201223
  Receipt Date: 20201223
  Transmission Date: 20210114
  Serious: Yes (Death)
  Sender: FDA-Public Use
  Company Number: AU-B.BRAUN MEDICAL INC.-2103387

PATIENT
  Age: 6 Year
  Sex: Male

DRUGS (9)
  1. PROSTACYCLIN [Concomitant]
     Active Substance: EPOPROSTENOL
  2. CEFTRIAXONE FOR INJECTION AND DEXTROSE INJECTION 0264-3153-11 (NDA 050 [Suspect]
     Active Substance: CEFTRIAXONE SODIUM
     Route: 042
  3. LINCOMYCIN. [Concomitant]
     Active Substance: LINCOMYCIN
  4. NOREPINEPHRINE. [Concomitant]
     Active Substance: NOREPINEPHRINE
  5. EPINEPHRINE. [Concomitant]
     Active Substance: EPINEPHRINE
  6. MEROPENEM. [Concomitant]
     Active Substance: MEROPENEM
  7. AZITHROMYCIN ANHYDROUS. [Concomitant]
     Active Substance: AZITHROMYCIN ANHYDROUS
  8. VANCOMYCIN HYDROCHLORIDE. [Concomitant]
     Active Substance: VANCOMYCIN HYDROCHLORIDE
  9. VASOPRESSIN. [Concomitant]
     Active Substance: VASOPRESSIN

REACTIONS (1)
  - Drug ineffective [Fatal]
